FAERS Safety Report 17455522 (Version 4)
Quarter: 2020Q1

REPORT INFORMATION
  Report Type: Report from Study
  Country: BE (occurrence: BE)
  Receive Date: 20200225
  Receipt Date: 20200331
  Transmission Date: 20200409
  Serious: Yes (Other)
  Sender: FDA-Public Use
  Company Number: BE-BEH-2020113300

PATIENT
  Age: 3 Year
  Sex: Female

DRUGS (3)
  1. HIZENTRA [Suspect]
     Active Substance: HUMAN IMMUNOGLOBULIN G
     Indication: PRIMARY IMMUNODEFICIENCY SYNDROME
     Dosage: 2 GRAM, QW
     Route: 058
  2. HIZENTRA [Suspect]
     Active Substance: HUMAN IMMUNOGLOBULIN G
     Dosage: 2 GRAM, TOT
     Route: 058
     Dates: start: 20190904, end: 20190904
  3. HIZENTRA [Suspect]
     Active Substance: HUMAN IMMUNOGLOBULIN G
     Dosage: UNK
     Route: 058
     Dates: start: 20200212, end: 20200212

REACTIONS (6)
  - Gait disturbance [Recovered/Resolved]
  - Pneumonia viral [Unknown]
  - Cerebral disorder [Unknown]
  - Dizziness [Recovered/Resolved]
  - Fall [Recovered/Resolved]
  - Viral test positive [Unknown]

NARRATIVE: CASE EVENT DATE: 20200213
